FAERS Safety Report 24960809 (Version 1)
Quarter: 2025Q1

REPORT INFORMATION
  Report Type: Spontaneous
  Country: FR (occurrence: FR)
  Receive Date: 20250212
  Receipt Date: 20250212
  Transmission Date: 20250409
  Serious: Yes (Life-Threatening)
  Sender: SANOFI AVENTIS
  Company Number: None

PATIENT
  Age: 58 Year
  Sex: Male

DRUGS (2)
  1. LOVENOX [Interacting]
     Active Substance: ENOXAPARIN SODIUM
     Indication: Bicuspid aortic valve
     Dosage: 16 ML, QD
     Route: 058
     Dates: start: 202412, end: 20250105
  2. FLUINDIONE [Interacting]
     Active Substance: FLUINDIONE
     Indication: Bicuspid aortic valve
     Dosage: 35 MG, QD
     Route: 048
     Dates: start: 20250102, end: 20250105

REACTIONS (2)
  - Drug interaction [Recovered/Resolved]
  - Post procedural haemorrhage [Recovered/Resolved]

NARRATIVE: CASE EVENT DATE: 20250106
